FAERS Safety Report 6062841-7 (Version None)
Quarter: 2009Q1

REPORT INFORMATION
  Report Type: 
  Country: None (occurrence: None)
  Receive Date: 20090203
  Receipt Date: 20090127
  Transmission Date: 20090719
  Serious: Yes (Death, Disabling)
  Sender: FDA-Public Use
  Company Number: PHHO2007MX11399

PATIENT
  Sex: Female

DRUGS (1)
  1. DIOVAN HCT [Suspect]
     Indication: HYPERTENSION
     Dosage: 160/25 MG DAILY
     Route: 048
     Dates: start: 20060701

REACTIONS (6)
  - ARTHROPOD BITE [None]
  - GAIT DISTURBANCE [None]
  - INFECTION [None]
  - INTESTINAL OPERATION [None]
  - POST PROCEDURAL INFECTION [None]
  - SKIN ULCER [None]
